FAERS Safety Report 17952359 (Version 1)
Quarter: 2020Q2

REPORT INFORMATION
  Report Type: Spontaneous
  Country: US (occurrence: US)
  Receive Date: 20200626
  Receipt Date: 20200626
  Transmission Date: 20200714
  Serious: Yes (Other)
  Sender: FDA-Public Use
  Company Number: US-GE HEALTHCARE LIFE SCIENCES-2020CSU002570

PATIENT
  Age: 79 Year
  Sex: Female

DRUGS (5)
  1. LEXISCAN [Suspect]
     Active Substance: REGADENOSON
     Indication: ACUTE MYOCARDIAL INFARCTION
  2. LEXISCAN [Suspect]
     Active Substance: REGADENOSON
     Indication: CARDIAC STRESS TEST
     Dosage: UNK, SINGLE
     Route: 042
  3. MYOVIEW [Suspect]
     Active Substance: TECHNETIUM TC-99M TETROFOSMIN
     Indication: ACUTE MYOCARDIAL INFARCTION
  4. TECHNETIUM TC 99M [Concomitant]
     Active Substance: TECHNETIUM TC-99M
  5. MYOVIEW [Suspect]
     Active Substance: TECHNETIUM TC-99M TETROFOSMIN
     Indication: CARDIAC STRESS TEST
     Dosage: UNK, SINGLE
     Route: 042

REACTIONS (1)
  - Stress cardiomyopathy [Recovered/Resolved]
